FAERS Safety Report 9725420 (Version 1)
Quarter: 2013Q4

REPORT INFORMATION
  Report Type: Spontaneous
  Country: US (occurrence: None)
  Receive Date: 20131202
  Receipt Date: 20131202
  Transmission Date: 20140711
  Serious: No
  Sender: FDA-Public Use
  Company Number: None

PATIENT
  Age: 64 Year
  Sex: Female
  Weight: 76.2 kg

DRUGS (1)
  1. ARTICAINE [Suspect]
     Indication: TOOTH REPAIR
     Dates: start: 20131126, end: 20131126

REACTIONS (3)
  - Hypoaesthesia [None]
  - Injection site pain [None]
  - Injection site swelling [None]
